FAERS Safety Report 9734877 (Version 1)
Quarter: 2013Q4

REPORT INFORMATION
  Report Type: Spontaneous
  Country: US (occurrence: US)
  Receive Date: 20131206
  Receipt Date: 20131206
  Transmission Date: 20140711
  Serious: No
  Sender: FDA-Public Use
  Company Number: US-ENDO PHARMACEUTICALS INC.-SPIR20120013

PATIENT
  Age: 32 Year
  Sex: Female

DRUGS (3)
  1. SPIRONOLACTONE [Suspect]
     Indication: POLYCYSTIC OVARIES
     Route: 048
     Dates: start: 20121105
  2. METFORMIN [Concomitant]
     Indication: POLYCYSTIC OVARIES
     Dosage: UNK
     Route: 048
     Dates: start: 20121105
  3. CELEXA [Concomitant]
     Indication: COELIAC DISEASE
     Dosage: UNK
     Route: 048

REACTIONS (3)
  - Abdominal distension [Not Recovered/Not Resolved]
  - Flatulence [Not Recovered/Not Resolved]
  - Dyspepsia [Not Recovered/Not Resolved]
